FAERS Safety Report 8806376 (Version 2)
Quarter: 2012Q4

REPORT INFORMATION
  Report Type: 
  Country: JP (occurrence: JP)
  Receive Date: 20120925
  Receipt Date: 20121221
  Transmission Date: 20130627
  Serious: Yes (Hospitalization)
  Sender: FDA-Public Use
  Company Number: JP-SANOFI-AVENTIS-2012SA069726

PATIENT
  Age: 43 Year
  Sex: Female

DRUGS (6)
  1. FLUOROURACIL [Suspect]
     Indication: CANCER OF SIGMOID COLON (EXCL RECTOSIGMOID)
     Route: 065
  2. FLUOROURACIL [Suspect]
     Indication: LIVER METASTASES
     Route: 065
  3. OXALIPLATIN [Suspect]
     Indication: CANCER OF SIGMOID COLON (EXCL RECTOSIGMOID)
     Route: 065
  4. OXALIPLATIN [Suspect]
     Indication: LIVER METASTASES
     Route: 065
  5. LEUCOVORIN [Suspect]
     Indication: CANCER OF SIGMOID COLON (EXCL RECTOSIGMOID)
     Route: 065
  6. LEUCOVORIN [Suspect]
     Indication: LIVER METASTASES
     Route: 065

REACTIONS (8)
  - Posterior reversible encephalopathy syndrome [Recovered/Resolved]
  - Grand mal convulsion [Recovered/Resolved]
  - Status epilepticus [Recovered/Resolved]
  - Headache [Recovered/Resolved]
  - Nausea [Recovered/Resolved]
  - Altered state of consciousness [Recovered/Resolved]
  - Visual impairment [Recovered/Resolved]
  - Speech disorder [Recovered/Resolved]
